FAERS Safety Report 21786487 (Version 2)
Quarter: 2024Q3

REPORT INFORMATION
  Report Type: Other
  Country: CO (occurrence: CO)
  Receive Date: 20221228
  Receipt Date: 20240717
  Transmission Date: 20241017
  Serious: No
  Sender: TOLMAR
  Company Number: CO-TOLMAR, INC.-22CO038038

PATIENT
  Age: 73 Year
  Sex: Male

DRUGS (1)
  1. ELIGARD [Suspect]
     Active Substance: LEUPROLIDE ACETATE
     Indication: Prostate cancer
     Dosage: 45 MILLIGRAM, Q 6 MONTH
     Route: 058
     Dates: start: 20220112

REACTIONS (2)
  - Balance disorder [Not Recovered/Not Resolved]
  - Osteoporosis [Unknown]

NARRATIVE: CASE EVENT DATE: 20220601
